FAERS Safety Report 5930963-4 (Version None)
Quarter: 2008Q4

REPORT INFORMATION
  Report Type: 
  Country: None (occurrence: None)
  Receive Date: 20081003
  Receipt Date: 20080314
  Transmission Date: 20090506
  Serious: Yes (Disabling, Other)
  Sender: FDA-Public Use
  Company Number: 2008024709

PATIENT

DRUGS (2)
  1. ADRIAMYCIN PFS [Suspect]
  2. TAXOTERE [Concomitant]

REACTIONS (1)
  - DEAFNESS [None]
